FAERS Safety Report 4537891-X (Version None)
Quarter: 2004Q4

REPORT INFORMATION
  Report Type: 
  Country: None (occurrence: None)
  Receive Date: 20041224
  Receipt Date: 20041111
  Transmission Date: 20050328
  Serious: Yes (Hospitalization)
  Sender: FDA-Public Use
  Company Number: US-MERCK-0411USA02210

PATIENT
  Age: 66 Year
  Sex: Male
  Weight: 97 kg

DRUGS (8)
  1. VIOXX [Suspect]
     Indication: ARTHRITIS
     Route: 048
     Dates: start: 20020101, end: 20040501
  2. COZAAR [Concomitant]
     Indication: HYPERTENSION
     Route: 065
  3. LASIX [Concomitant]
     Route: 065
  4. NORVASC [Concomitant]
     Indication: HYPERTENSION
     Route: 065
  5. [THERAPY UNSPECIFIED] [Concomitant]
     Route: 065
  6. MINOXIDIL [Concomitant]
     Route: 065
  7. COUMADIN [Concomitant]
     Indication: ATRIAL FIBRILLATION
     Route: 065
  8. METOPROLOL [Concomitant]
     Route: 065

REACTIONS (1)
  - DILATATION VENTRICULAR [None]
